FAERS Safety Report 9251728 (Version 1)
Quarter: 2013Q1

REPORT INFORMATION
  Report Type: Spontaneous
  Country: US (occurrence: None)
  Receive Date: 20130305
  Receipt Date: 20130305
  Transmission Date: 20140127
  Serious: Yes (Other)
  Sender: FDA-Public Use
  Company Number: 163-21880-12090144

PATIENT
  Age: 67 Year
  Sex: Female
  Weight: 56.7 kg

DRUGS (10)
  1. REVLIMID [Suspect]
     Indication: PLASMA CELL MYELOMA
     Dosage: 08/17/2012 - UNKNOWN, CAPSULE, 10 MG, 28 IN 28 D, PO
  2. LEVOTHYROXINE (LEVOTHYROXINE) [Concomitant]
  3. ACYCLOVIR (ACICLOVIR) [Concomitant]
  4. GABAPENTIN (GABAPENTIN) [Concomitant]
  5. SULFAMETHOXAZOLE/TRIMETHOPRIM (BACTRIM) [Concomitant]
  6. CARVEDILOL (CARVEDILOL) [Concomitant]
  7. ASPIRIN (ACETYLSALICYLIC ACID) [Concomitant]
  8. FOLIC ACID (FOLIC ACID) [Concomitant]
  9. LISINOPRIL/HYDROCHLOROTHIAZIDE (PRINZIDE) [Concomitant]
  10. SIMVASTATIN (SIMVASTATIN) [Concomitant]

REACTIONS (4)
  - Hypersensitivity [None]
  - Urticaria [None]
  - Pruritus [None]
  - Diarrhoea [None]
